FAERS Safety Report 12200627 (Version 2)
Quarter: 2017Q1

REPORT INFORMATION
  Report Type: Spontaneous
  Country: US (occurrence: US)
  Receive Date: 20160322
  Receipt Date: 20170331
  Transmission Date: 20170428
  Serious: No
  Sender: FDA-Public Use
  Company Number: US-SEPTODONT-201603170

PATIENT
  Age: 4 Decade
  Sex: Female

DRUGS (1)
  1. LIDOCAINE HYDROCHLORIDE 2% WITH EPINEPHRINE 1:100,000 INJECTION [Suspect]
     Active Substance: EPINEPHRINE\LIDOCAINE HYDROCHLORIDE
     Indication: LOCAL ANAESTHESIA
     Dosage: INJECTED WITH 4 CARPULES IN THE UPPER JAW AREA DURING A ROUTINE FILLING.
     Route: 004

REACTIONS (1)
  - Drug ineffective [Unknown]
